FAERS Safety Report 6628755-6 (Version None)
Quarter: 2010Q1

REPORT INFORMATION
  Report Type: 
  Country: None (occurrence: None)
  Receive Date: 20100311
  Receipt Date: 20100309
  Transmission Date: 20100710
  Serious: Yes (Life-Threatening, Hospitalization, Disabling, Other)
  Sender: FDA-Public Use
  Company Number: CHPA2010GB04638

PATIENT
  Age: 72 Year
  Sex: Female
  Weight: 58.5 kg

DRUGS (4)
  1. NICOTINE (NCH) [Suspect]
     Indication: EX-TOBACCO USER
     Dosage: UNK, UNK
     Route: 002
     Dates: start: 20020430
  2. BIMATOPROST [Concomitant]
     Dosage: UNK
     Dates: start: 20070914
  3. VAGIFEM [Concomitant]
     Dosage: 1 DF, 2 TIMES PER WEEK
     Dates: start: 20080707
  4. WARFARIN SODIUM [Concomitant]
     Dosage: UNK
     Dates: start: 20070709

REACTIONS (2)
  - LIP AND/OR ORAL CAVITY CANCER [None]
  - METASTASES TO LYMPH NODES [None]
